FAERS Safety Report 6588620-X (Version None)
Quarter: 2010Q1

REPORT INFORMATION
  Report Type: 
  Country: None (occurrence: None)
  Receive Date: 20100218
  Receipt Date: 20091123
  Transmission Date: 20100710
  Serious: No
  Sender: FDA-Public Use
  Company Number: US-ALLERGAN-0916344US

PATIENT
  Age: 37 Year
  Sex: Female
  Weight: 57.143 kg

DRUGS (2)
  1. BOTOX COSMETIC [Suspect]
     Indication: SKIN WRINKLING
     Dosage: UNK
     Route: 030
     Dates: start: 20091120, end: 20091120
  2. THYROID TAB [Concomitant]

REACTIONS (11)
  - DYSPHAGIA [None]
  - EYELID OEDEMA [None]
  - FACIAL PARESIS [None]
  - HEADACHE [None]
  - INJECTION SITE ANAESTHESIA [None]
  - INJECTION SITE HAEMATOMA [None]
  - INJECTION SITE PAIN [None]
  - INJECTION SITE PARAESTHESIA [None]
  - MUSCLE TWITCHING [None]
  - MUSCULOSKELETAL STIFFNESS [None]
  - NECK PAIN [None]
